FAERS Safety Report 11739678 (Version 1)
Quarter: 2015Q4

REPORT INFORMATION
  Report Type: Spontaneous
  Country: OM (occurrence: OM)
  Receive Date: 20151113
  Receipt Date: 20151113
  Transmission Date: 20160304
  Serious: Yes (Other)
  Sender: FDA-Public Use
  Company Number: OM-JUBILANT CADISTA PHARMACEUTICALS-2015JUB00368

PATIENT
  Age: 12 Year
  Sex: Female

DRUGS (1)
  1. MYCOPHENOLATE MOFETIL. [Suspect]
     Active Substance: MYCOPHENOLATE MOFETIL
     Indication: PROPHYLAXIS AGAINST GRAFT VERSUS HOST DISEASE
     Dosage: 75 MG/KG, 1X/DAY

REACTIONS (2)
  - Hypertension [Recovered/Resolved]
  - Hyperaldosteronism [Recovered/Resolved]
